FAERS Safety Report 17069445 (Version 4)
Quarter: 2019Q4

REPORT INFORMATION
  Report Type: Report from Study
  Country: US (occurrence: US)
  Receive Date: 20191125
  Receipt Date: 20191211
  Transmission Date: 20200122
  Serious: Yes (Disabling, Other)
  Sender: FDA-Public Use
  Company Number: US-IPSEN BIOPHARMACEUTICALS, INC.-2019-21830

PATIENT
  Sex: Male
  Weight: 83 kg

DRUGS (5)
  1. DYSPORT [Suspect]
     Active Substance: ABOBOTULINUMTOXINA
     Indication: TORTICOLLIS
     Dosage: 225 UNITS AROUND THE NECK
     Route: 065
     Dates: start: 20190710, end: 20190710
  2. SENOKOT [Concomitant]
     Active Substance: SENNOSIDES
     Indication: CONSTIPATION
     Route: 048
  3. HYDROCORTISONE. [Concomitant]
     Active Substance: HYDROCORTISONE
     Indication: NECK PAIN
     Dosage: FROM YEARS
     Route: 048
  4. FENTANYL. [Concomitant]
     Active Substance: FENTANYL
     Indication: NECK PAIN
     Dosage: FROM YEARS
     Route: 062
  5. SERTRALINE [Concomitant]
     Active Substance: SERTRALINE HYDROCHLORIDE
     Indication: DEPRESSION
     Route: 048

REACTIONS (7)
  - Cough [Unknown]
  - Musculoskeletal stiffness [Not Recovered/Not Resolved]
  - Torticollis [Not Recovered/Not Resolved]
  - Choking [Unknown]
  - Gastric disorder [Unknown]
  - Dysphagia [Not Recovered/Not Resolved]
  - Headache [Unknown]

NARRATIVE: CASE EVENT DATE: 2019
